FAERS Safety Report 16395510 (Version 16)
Quarter: 2024Q2

REPORT INFORMATION
  Report Type: Spontaneous
  Country: DE (occurrence: DE)
  Receive Date: 20190605
  Receipt Date: 20240405
  Transmission Date: 20240716
  Serious: Yes (Hospitalization, Other)
  Sender: FDA-Public Use
  Company Number: DE-ROCHE-2121184

PATIENT
  Age: 50 Year
  Sex: Female

DRUGS (49)
  1. DICLOFENAC [Suspect]
     Active Substance: DICLOFENAC
     Indication: Back pain
     Dosage: 100 MG, QD, RETARD
     Route: 048
     Dates: start: 20190122
  2. DICLOFENAC [Suspect]
     Active Substance: DICLOFENAC
     Indication: Sacral pain
  3. DICLOFENAC [Suspect]
     Active Substance: DICLOFENAC
     Indication: Arthralgia
  4. DICLOFENAC [Suspect]
     Active Substance: DICLOFENAC
     Indication: Sacral pain
  5. DICLOFENAC [Suspect]
     Active Substance: DICLOFENAC
     Indication: Back pain
     Dosage: RETARD
     Route: 054
     Dates: start: 20190122
  6. DICLOFENAC [Suspect]
     Active Substance: DICLOFENAC
     Indication: Sacral pain
     Route: 054
  7. DICLOFENAC [Suspect]
     Active Substance: DICLOFENAC
     Indication: Arthralgia
  8. AMITRIPTYLINE [Suspect]
     Active Substance: AMITRIPTYLINE
     Indication: Depression
     Dosage: 0-0-1
     Route: 065
  9. AMITRIPTYLINE [Suspect]
     Active Substance: AMITRIPTYLINE
     Route: 065
  10. AMITRIPTYLINE [Suspect]
     Active Substance: AMITRIPTYLINE
     Route: 065
  11. OCREVUS [Suspect]
     Active Substance: OCRELIZUMAB
     Indication: Relapsing-remitting multiple sclerosis
     Route: 042
     Dates: start: 20180503, end: 20180503
  12. OCREVUS [Suspect]
     Active Substance: OCRELIZUMAB
     Dosage: NEXT DOSE ON 09/JUN/2020
     Route: 042
     Dates: start: 20181106
  13. OCREVUS [Suspect]
     Active Substance: OCRELIZUMAB
     Route: 042
     Dates: end: 20210629
  14. OCREVUS [Suspect]
     Active Substance: OCRELIZUMAB
     Dosage: SECOND DOSE
     Route: 042
     Dates: start: 20180517, end: 20180517
  15. OCREVUS [Suspect]
     Active Substance: OCRELIZUMAB
     Route: 042
     Dates: start: 20200609
  16. OCREVUS [Suspect]
     Active Substance: OCRELIZUMAB
     Route: 042
     Dates: start: 20201207
  17. OCREVUS [Suspect]
     Active Substance: OCRELIZUMAB
     Route: 065
  18. OCREVUS [Suspect]
     Active Substance: OCRELIZUMAB
     Route: 042
     Dates: start: 20230801
  19. BISACODYL [Concomitant]
     Active Substance: BISACODYL
     Indication: Product used for unknown indication
  20. PANTOPRAZOLE [Concomitant]
     Active Substance: PANTOPRAZOLE
     Indication: Product used for unknown indication
     Dosage: 1-0-0
     Route: 048
  21. RAMIPRIL [Concomitant]
     Active Substance: RAMIPRIL
     Indication: Hypertension
     Dosage: 1-0-1
  22. RAMIPRIL [Concomitant]
     Active Substance: RAMIPRIL
     Dosage: 1-0-0
  23. RAMIPRIL [Concomitant]
     Active Substance: RAMIPRIL
     Dosage: 5 MG, BID, 1-0-1
  24. FOLIC ACID [Concomitant]
     Active Substance: FOLIC ACID
     Indication: Product used for unknown indication
  25. BUDESONIDE [Concomitant]
     Active Substance: BUDESONIDE
     Indication: Product used for unknown indication
     Dosage: 2 HUBS PER DAY
  26. ASPIRIN [Concomitant]
     Active Substance: ASPIRIN
     Indication: Product used for unknown indication
     Route: 048
  27. CARBAMAZEPINE [Concomitant]
     Active Substance: CARBAMAZEPINE
     Indication: Product used for unknown indication
     Dosage: 0-1-0
     Route: 048
  28. CARBAMAZEPINE [Concomitant]
     Active Substance: CARBAMAZEPINE
     Dosage: 2-0-1
     Dates: start: 20190801
  29. CARBAMAZEPINE [Concomitant]
     Active Substance: CARBAMAZEPINE
     Dosage: 1-0-0
  30. BACLOFENUM [Concomitant]
     Indication: Muscle spasticity
  31. BACLOFENUM [Concomitant]
     Dosage: 15 MG - 15 MG - 25 MG
     Route: 048
  32. BACLOFENUM [Concomitant]
     Dosage: 5 MG,0.33 (10 MG - 5 MG - 20 MG)
  33. BACLOFENUM [Concomitant]
  34. CHOLECALCIFEROL [Concomitant]
     Active Substance: CHOLECALCIFEROL
     Indication: Vitamin D deficiency
  35. SELENIUM [Concomitant]
     Active Substance: SELENIUM
     Indication: Product used for unknown indication
  36. MAGNESIUM [Concomitant]
     Active Substance: MAGNESIUM
     Indication: Muscle spasms
     Dosage: 0-1-0
  37. ACYCLOVIR [Concomitant]
     Active Substance: ACYCLOVIR
     Indication: Product used for unknown indication
     Dosage: 1-0-1 FOR FOUR WEEKS
  38. ACYCLOVIR [Concomitant]
     Active Substance: ACYCLOVIR
     Dosage: UNK, BID (1-0-1 FOR FOUR WEEKS)
  39. FOLIC ACID [Concomitant]
     Active Substance: FOLIC ACID
     Indication: Product used for unknown indication
  40. ZINC [Concomitant]
     Active Substance: PYRITHIONE ZINC\ZINC\ZINC CHLORIDE
     Indication: Product used for unknown indication
  41. BACLOFEN [Concomitant]
     Active Substance: BACLOFEN
     Indication: Muscle spasticity
     Dosage: 0.33 DAYS
  42. BACLOFEN [Concomitant]
     Active Substance: BACLOFEN
     Dosage: 0.33 DAYS, 10 MG-15 MG-25 MG
  43. BACLOFEN [Concomitant]
     Active Substance: BACLOFEN
     Dosage: 0.33 DAYS, 2-2-3
  44. BACLOFEN [Concomitant]
     Active Substance: BACLOFEN
     Dosage: 0.33 DAYS, 10 MG-5 MG-20 MG
  45. BACLOFEN [Concomitant]
     Active Substance: BACLOFEN
     Dosage: 0.33 DAYS, 15 MG-15 MG-25 MG
  46. BACLOFEN [Concomitant]
     Active Substance: BACLOFEN
     Dosage: 0.33 DAYS, 10 MG-15 MG-25 MG
  47. BACLOFEN [Concomitant]
     Active Substance: BACLOFEN
  48. BOTOX [Concomitant]
     Active Substance: ONABOTULINUMTOXINA
     Indication: Product used for unknown indication
  49. METHYLPREDNISOLONE [Concomitant]
     Active Substance: METHYLPREDNISOLONE
     Indication: Product used for unknown indication

REACTIONS (54)
  - Back pain [Recovered/Resolved]
  - Meniscus injury [Recovered/Resolved]
  - Osteoarthritis [Not Recovered/Not Resolved]
  - Spinal stenosis [Not Recovered/Not Resolved]
  - Multiple sclerosis [Not Recovered/Not Resolved]
  - Angina pectoris [Recovered/Resolved]
  - Norovirus infection [Recovered/Resolved]
  - Urticaria [Recovered/Resolved]
  - Drug ineffective [Unknown]
  - Acquired diaphragmatic eventration [Not Recovered/Not Resolved]
  - Joint arthroplasty [Recovered/Resolved]
  - Infrapatellar fat pad inflammation [Not Recovered/Not Resolved]
  - Cholelithiasis [Recovered/Resolved]
  - C-reactive protein increased [Recovering/Resolving]
  - Infusion related reaction [Recovered/Resolved]
  - Feeling abnormal [Not Recovered/Not Resolved]
  - Memory impairment [Recovered/Resolved]
  - Oropharyngeal pain [Recovering/Resolving]
  - Cough [Recovering/Resolving]
  - Migraine [Recovered/Resolved]
  - Sacral pain [Recovering/Resolving]
  - Sleep disorder [Recovering/Resolving]
  - Skin laceration [Recovered/Resolved]
  - Muscle spasticity [Recovering/Resolving]
  - Sacroiliitis [Recovered/Resolved]
  - Neuralgia [Recovered/Resolved]
  - Effusion [Not Recovered/Not Resolved]
  - Chondropathy [Not Recovered/Not Resolved]
  - Sensory disturbance [Recovering/Resolving]
  - Feeling abnormal [Not Recovered/Not Resolved]
  - Irritable bowel syndrome [Recovered/Resolved]
  - Cystitis noninfective [Recovered/Resolved]
  - Nasopharyngitis [Recovering/Resolving]
  - Genital herpes [Recovered/Resolved]
  - Dizziness [Recovered/Resolved]
  - Fatigue [Not Recovered/Not Resolved]
  - Respiratory tract infection [Recovered/Resolved]
  - Terminal insomnia [Recovering/Resolving]
  - Insomnia [Recovered/Resolved]
  - Dyspnoea [Recovering/Resolving]
  - Dyspepsia [Not Recovered/Not Resolved]
  - Nausea [Recovered/Resolved]
  - Headache [Recovered/Resolved]
  - Infection [Recovered/Resolved]
  - Pruritus [Recovered/Resolved]
  - Pyrexia [Recovered/Resolved]
  - Abdominal pain upper [Recovered/Resolved]
  - Paraesthesia [Recovered/Resolved]
  - Rash [Recovered/Resolved]
  - Herpes virus infection [Recovered/Resolved]
  - Nasopharyngitis [Not Recovered/Not Resolved]
  - White blood cell count decreased [Not Recovered/Not Resolved]
  - Therapeutic product effect decreased [Recovered/Resolved]
  - Product administration error [Unknown]

NARRATIVE: CASE EVENT DATE: 20180503
